FAERS Safety Report 4823345-X (Version None)
Quarter: 2005Q4

REPORT INFORMATION
  Report Type: 
  Country: None (occurrence: None)
  Receive Date: 20051109
  Receipt Date: 20051101
  Transmission Date: 20060501
  Serious: Yes (Hospitalization)
  Sender: FDA-Public Use
  Company Number: 2005UW16558

PATIENT
  Sex: Male

DRUGS (7)
  1. SEROQUEL [Suspect]
     Route: 048
  2. DEPAKOTE [Concomitant]
  3. DILANTIN [Concomitant]
  4. PAXIL [Concomitant]
  5. DOXEPIN HCL [Concomitant]
  6. PRILOSEC [Concomitant]
  7. CHLORZOXAZONE [Concomitant]

REACTIONS (1)
  - HYPERKALAEMIA [None]
